FAERS Safety Report 16226388 (Version 1)
Quarter: 2019Q2

REPORT INFORMATION
  Report Type: Report from Study
  Country: None (occurrence: JP)
  Receive Date: 20190423
  Receipt Date: 20190423
  Transmission Date: 20190711
  Serious: Yes (Other)
  Sender: FDA-Public Use
  Company Number: JP-ABBVIE-19K-087-2747756-00

PATIENT
  Sex: Male

DRUGS (1)
  1. MAVIRET [Suspect]
     Active Substance: GLECAPREVIR\PIBRENTASVIR
     Indication: HEPATITIS
     Route: 048
     Dates: start: 20190318

REACTIONS (10)
  - Aphonia [Unknown]
  - Heart rate increased [Unknown]
  - Musculoskeletal stiffness [Unknown]
  - Headache [Unknown]
  - Hepatic cirrhosis [Unknown]
  - Dysphonia [Unknown]
  - Mobility decreased [Unknown]
  - Discomfort [Unknown]
  - Malaise [Unknown]
  - Muscle spasms [Unknown]

NARRATIVE: CASE EVENT DATE: 2019
